FAERS Safety Report 8172713-X (Version None)
Quarter: 2012Q1

REPORT INFORMATION
  Report Type: 
  Country: None (occurrence: None)
  Receive Date: 20120223
  Receipt Date: 20120208
  Transmission Date: 20120608
  Serious: Yes (Hospitalization, Other)
  Sender: FDA-Public Use
  Company Number: JP-20120006

PATIENT
  Age: 74 Year
  Sex: Male

DRUGS (6)
  1. (GELATIN) (GELATIN) [Suspect]
     Dosage: (1 IN 1 D) INTRA-ARTERIAL ; INTRA-ARTERIAL
     Route: 013
     Dates: start: 20101101, end: 20101101
  2. (GELATIN) (GELATIN) [Suspect]
     Dosage: (1 IN 1 D) INTRA-ARTERIAL ; INTRA-ARTERIAL
     Route: 013
     Dates: start: 20110701, end: 20110701
  3. 10ML (LIPIODOL ULTRA FLUIDE) (ETHIODIZED OIL) [Suspect]
     Indication: THERAPEUTIC EMBOLISATION
     Dosage: 4 ML (1 IN 1 D) INTRA-ARTERIAL ; (2 ML) INTRA-ARTERIAL
     Route: 013
     Dates: start: 20111101, end: 20111101
  4. 10ML (LIPIODOL ULTRA FLUIDE) (ETHIODIZED OIL) [Suspect]
     Indication: THERAPEUTIC EMBOLISATION
     Dosage: 4 ML (1 IN 1 D) INTRA-ARTERIAL ; (2 ML) INTRA-ARTERIAL
     Route: 013
     Dates: start: 20110701, end: 20110701
  5. EPIRUBICIN HYDROCHLORIDE [Suspect]
     Dosage: 40 MG (20 MG,1 IN 1 D) INTRA-ARTERIAL ; INTRA-ARTERIAL
     Route: 013
     Dates: start: 20111101, end: 20111101
  6. EPIRUBICIN HYDROCHLORIDE [Suspect]
     Dosage: 40 MG (20 MG,1 IN 1 D) INTRA-ARTERIAL ; INTRA-ARTERIAL
     Route: 013
     Dates: start: 20110701, end: 20110701

REACTIONS (4)
  - OFF LABEL USE [None]
  - LIVER ABSCESS [None]
  - DISSEMINATED INTRAVASCULAR COAGULATION [None]
  - RENAL IMPAIRMENT [None]
